FAERS Safety Report 6664594-8 (Version None)
Quarter: 2010Q2

REPORT INFORMATION
  Report Type: 
  Country: None (occurrence: None)
  Receive Date: 20100401
  Receipt Date: 20100322
  Transmission Date: 20101027
  Serious: Yes (Death)
  Sender: FDA-Public Use
  Company Number: GB-ABBOTT-10P-167-0633652-00

PATIENT
  Sex: Male

DRUGS (1)
  1. VALPROATE SODIUM [Suspect]
     Indication: INTENTIONAL OVERDOSE
     Route: 065

REACTIONS (5)
  - BRADYCARDIA [None]
  - BRAIN OEDEMA [None]
  - HYPERAMMONAEMIA [None]
  - HYPERTENSION [None]
  - INTENTIONAL OVERDOSE [None]
